FAERS Safety Report 9107281 (Version 1)
Quarter: 2013Q1

REPORT INFORMATION
  Report Type: Report from Study
  Country: CA (occurrence: CA)
  Receive Date: 20130221
  Receipt Date: 20130221
  Transmission Date: 20140127
  Serious: Yes (Other)
  Sender: FDA-Public Use
  Company Number: CA-JNJFOC-20130207985

PATIENT
  Age: 45 Year
  Sex: Female
  Weight: 89.8 kg

DRUGS (4)
  1. REMICADE [Suspect]
     Indication: CROHN^S DISEASE
     Dosage: 69TH INFUSION
     Route: 042
     Dates: start: 20130212
  2. REMICADE [Suspect]
     Indication: CROHN^S DISEASE
     Route: 042
     Dates: start: 1999
  3. ATIVAN [Concomitant]
     Dosage: TAKES IT RARELY POST ^MVA^.
     Route: 065
  4. OLMETEC [Concomitant]
     Indication: BLOOD PRESSURE INCREASED
     Route: 065

REACTIONS (2)
  - Pulmonary congestion [Recovered/Resolved]
  - Influenza like illness [Recovered/Resolved]
